FAERS Safety Report 18792896 (Version 1)
Quarter: 2021Q1

REPORT INFORMATION
  Report Type: Spontaneous
  Country: IT (occurrence: IT)
  Receive Date: 20210127
  Receipt Date: 20210127
  Transmission Date: 20210419
  Serious: Yes (Other)
  Sender: FDA-Public Use
  Company Number: IT-SA-2021SA023174

PATIENT
  Age: 41 Year
  Sex: Male

DRUGS (3)
  1. ALCOVER [Concomitant]
     Active Substance: SODIUM OXYBATE
  2. DIAZEPAM. [Suspect]
     Active Substance: DIAZEPAM
     Indication: DRUG ABUSE
     Dosage: 1 DF
     Route: 048
     Dates: start: 20201203
  3. LANTUS [Suspect]
     Active Substance: INSULIN GLARGINE
     Indication: DRUG ABUSE
     Dosage: 120 IU
     Route: 058
     Dates: start: 20201203

REACTIONS (4)
  - Suicide attempt [Recovering/Resolving]
  - Hypoglycaemia [Recovering/Resolving]
  - Sopor [Recovering/Resolving]
  - Drug abuse [Unknown]

NARRATIVE: CASE EVENT DATE: 20201203
